FAERS Safety Report 10147394 (Version 1)
Quarter: 2014Q2

REPORT INFORMATION
  Report Type: Spontaneous
  Country: IT (occurrence: IT)
  Receive Date: 20140501
  Receipt Date: 20140501
  Transmission Date: 20141212
  Serious: Yes (Other)
  Sender: FDA-Public Use
  Company Number: PHHY2014IT050421

PATIENT
  Age: 9 Year
  Sex: Female

DRUGS (2)
  1. TOPIRAMATE [Suspect]
     Dosage: 200 MG, UNK
  2. TOPIRAMATE [Suspect]
     Dosage: 100 MG, UNK

REACTIONS (4)
  - Aphasia [Unknown]
  - Headache [Unknown]
  - Drug resistance [Unknown]
  - Drug effect incomplete [Unknown]
